FAERS Safety Report 9659341 (Version 1)
Quarter: 2013Q4

REPORT INFORMATION
  Report Type: Spontaneous
  Country: US (occurrence: US)
  Receive Date: 20131031
  Receipt Date: 20131031
  Transmission Date: 20140711
  Serious: No
  Sender: FDA-Public Use
  Company Number: US-009507513-1310USA014598

PATIENT
  Sex: Female
  Weight: 56.69 kg

DRUGS (1)
  1. NEXPLANON [Suspect]
     Indication: CONTRACEPTION
     Dosage: ROUTE: IN THE LEFT ARM
     Route: 059
     Dates: start: 201304

REACTIONS (2)
  - Vaginal haemorrhage [Unknown]
  - Hypomenorrhoea [Unknown]
